FAERS Safety Report 9300408 (Version 1)
Quarter: 2013Q2

REPORT INFORMATION
  Report Type: Spontaneous
  Country: US (occurrence: US)
  Receive Date: 20130521
  Receipt Date: 20130521
  Transmission Date: 20140414
  Serious: No
  Sender: FDA-Public Use
  Company Number: US-BAYER-2013-062741

PATIENT
  Age: 62 Year
  Sex: Male
  Weight: 72.56 kg

DRUGS (1)
  1. ALEVE CAPLET [Suspect]
     Indication: ARTHRITIS
     Dosage: 2 DF, EVERY 6 HOURS
     Route: 048
     Dates: start: 20130510, end: 20130515

REACTIONS (2)
  - Drug ineffective [None]
  - Incorrect dose administered [None]
